FAERS Safety Report 8811162 (Version 3)
Quarter: 2017Q4

REPORT INFORMATION
  Report Type: Spontaneous
  Country: US (occurrence: US)
  Receive Date: 20120927
  Receipt Date: 20171215
  Transmission Date: 20180321
  Serious: Yes (Hospitalization, Disabling, Other)
  Sender: FDA-Public Use
  Company Number: US-009507513-1209USA009475

PATIENT
  Sex: Female

DRUGS (4)
  1. ALENDRONATE SODIUM. [Suspect]
     Active Substance: ALENDRONATE SODIUM
     Indication: OSTEOPOROSIS
     Dosage: 70 MG, QW
     Route: 048
     Dates: start: 20081120, end: 2010
  2. FOSAMAX [Suspect]
     Active Substance: ALENDRONATE SODIUM
     Indication: OSTEOPOROSIS
     Dosage: UNK
     Route: 048
  3. FOSAMAX [Suspect]
     Active Substance: ALENDRONATE SODIUM
     Indication: OSTEOPOROSIS
     Dosage: 70 MG, UNK
     Route: 048
     Dates: start: 20081120, end: 2010
  4. ALENDRONATE SODIUM. [Suspect]
     Active Substance: ALENDRONATE SODIUM
     Indication: OSTEOPOROSIS
     Dosage: 70 MG, QW
     Route: 048
     Dates: start: 20090207, end: 2010

REACTIONS (14)
  - Hypothyroidism [Unknown]
  - Hypertension [Unknown]
  - Neovascular age-related macular degeneration [Unknown]
  - Repetitive strain injury [Unknown]
  - Pharyngeal disorder [Unknown]
  - Retinal operation [Unknown]
  - Snoring [Unknown]
  - Arthritis [Unknown]
  - Hypercholesterolaemia [Unknown]
  - Cataract operation [Unknown]
  - Femur fracture [Unknown]
  - Jaw disorder [Unknown]
  - Glaucoma [Unknown]
  - Foot deformity [Unknown]

NARRATIVE: CASE EVENT DATE: 201003
